FAERS Safety Report 5220660-5 (Version None)
Quarter: 2007Q1

REPORT INFORMATION
  Report Type: 
  Country: None (occurrence: None)
  Receive Date: 20070126
  Receipt Date: 20070120
  Transmission Date: 20070707
  Serious: Yes (Other)
  Sender: FDA-Public Use
  Company Number: 2007UW01289

PATIENT
  Age: 34 Year
  Sex: Male

DRUGS (3)
  1. SEROQUEL [Suspect]
     Route: 048
  2. VOLTAREN [Concomitant]
  3. VICODIN [Concomitant]

REACTIONS (5)
  - DYSLIPIDAEMIA [None]
  - GLUCOSE TOLERANCE IMPAIRED [None]
  - SOMNOLENCE [None]
  - SURGERY [None]
  - WEIGHT INCREASED [None]
